FAERS Safety Report 5643784-7 (Version None)
Quarter: 2008Q1

REPORT INFORMATION
  Report Type: 
  Country: None (occurrence: None)
  Receive Date: 20080226
  Receipt Date: 20080218
  Transmission Date: 20080703
  Serious: Yes (Death, Hospitalization)
  Sender: FDA-Public Use
  Company Number: 163-21880-07120289

PATIENT
  Age: 70 Year
  Sex: Male

DRUGS (34)
  1. REVLIMID [Suspect]
     Indication: INFARCTION
     Dosage: 10 MG, DAILY, ORAL
     Route: 048
     Dates: start: 20070124, end: 20071109
  2. OXYCODONE (OXYCODONE) (TABLETS) [Concomitant]
  3. BACTRIM DS [Concomitant]
  4. COUMADIN [Concomitant]
  5. FLUTAMIDE [Concomitant]
  6. CLARITHROMYCIN (CLARITHRYOMYCIN) [Concomitant]
  7. LUPRON (LEUPRORELIN ACETATE) (INJECTION) [Concomitant]
  8. VALTEX (VALACICLOVIR HYDROCHLORIDE) [Concomitant]
  9. ACETAMINOPHEN (PARACETAMOL) (SOLUTION) [Concomitant]
  10. NYSTATIN (NYSTATIN) (SUSPENSION) [Concomitant]
  11. LACTINEX (LACTINEX) [Concomitant]
  12. DEXTROSE 50% IN WATER (GLUCOSE INJECTION) [Concomitant]
  13. INSULIN (INSULIN) [Concomitant]
  14. NEURONTIN [Concomitant]
  15. PHENYLEPHRINE (PHENYLEPHRINE) [Concomitant]
  16. ASPIRIN [Concomitant]
  17. PREVACID [Concomitant]
  18. LOPRESSOR [Concomitant]
  19. LANOXIN [Concomitant]
  20. ALBUTEROL [Concomitant]
  21. IPRATROPIUM BROMIDE [Concomitant]
  22. SODIUM CHLORIDE 0.9% [Concomitant]
  23. RITALIN [Concomitant]
  24. AMIKIN [Concomitant]
  25. PIPERACILLIN-TAZOBACTAM (PIPERACILLIN W/TAZOBACTRAM) [Concomitant]
  26. VANCOMYCIN [Concomitant]
  27. KEPPRA [Concomitant]
  28. LASIX [Concomitant]
  29. DARVOCET [Concomitant]
  30. NEULASTA (PEGILGRASTIM) [Concomitant]
  31. ARANESP [Concomitant]
  32. CODEINE (CODEINE) (INJECTION) [Concomitant]
  33. LEVOPHED [Concomitant]
  34. BREVIBLOC [Concomitant]

REACTIONS (15)
  - ATELECTASIS [None]
  - ATRIAL FIBRILLATION [None]
  - ATRIAL FLUTTER [None]
  - BRAIN STEM INFARCTION [None]
  - BRAIN STEM THROMBOSIS [None]
  - CEREBELLAR INFARCTION [None]
  - CEREBRAL ISCHAEMIA [None]
  - HYPERCOAGULATION [None]
  - HYPOTENSION [None]
  - MENINGITIS [None]
  - PANCYTOPENIA [None]
  - PNEUMONIA [None]
  - PUPILS UNEQUAL [None]
  - RESPIRATORY FAILURE [None]
  - SEPSIS [None]
